FAERS Safety Report 16579443 (Version 2)
Quarter: 2019Q3

REPORT INFORMATION
  Report Type: Spontaneous
  Country: DK (occurrence: DK)
  Receive Date: 20190716
  Receipt Date: 20190731
  Transmission Date: 20191004
  Serious: Yes (Hospitalization)
  Sender: FDA-Public Use
  Company Number: DK-BAXTER-2019BAX013480

PATIENT
  Age: 39 Year
  Sex: Male

DRUGS (8)
  1. METHADONE [Concomitant]
     Active Substance: METHADONE HYDROCHLORIDE
     Indication: SUBSTANCE ABUSE
     Dosage: STRENGTH: 5 AND 20 MG, DAILY DOSE:  90 MG.
     Route: 048
  2. DOXORUBICIN TEVA [Suspect]
     Active Substance: DOXORUBICIN
     Indication: DIFFUSE LARGE B-CELL LYMPHOMA STAGE IV
     Dosage: STRENGTH: 2 MG/ML
     Route: 042
     Dates: start: 20170710, end: 20170928
  3. ONCOVIN [Suspect]
     Active Substance: VINCRISTINE SULFATE
     Indication: DIFFUSE LARGE B-CELL LYMPHOMA STAGE IV
     Dosage: STRENGTH: 1 MG/ML.
     Route: 042
     Dates: start: 20170710, end: 2017
  4. VELBE [Suspect]
     Active Substance: VINBLASTINE SULFATE
     Indication: DIFFUSE LARGE B-CELL LYMPHOMA STAGE IV
     Dosage: STRENGTH: 10 MG.
     Route: 042
     Dates: start: 2017, end: 201709
  5. SENDOXAN [Suspect]
     Active Substance: CYCLOPHOSPHAMIDE
     Indication: DIFFUSE LARGE B-CELL LYMPHOMA STAGE IV
     Route: 042
     Dates: start: 20170710, end: 20170928
  6. ETOPOSIDE FRESENIUS KABI [Suspect]
     Active Substance: ETOPOSIDE
     Indication: DIFFUSE LARGE B-CELL LYMPHOMA STAGE IV
     Dosage: STRENGTH: 20 MG/ML
     Route: 042
     Dates: start: 20170710, end: 20170928
  7. MABTHERA [Suspect]
     Active Substance: RITUXIMAB
     Indication: DIFFUSE LARGE B-CELL LYMPHOMA STAGE IV
     Route: 042
     Dates: start: 20170710, end: 20170928
  8. PREDNISOLONE. [Concomitant]
     Active Substance: PREDNISOLONE
     Indication: DIFFUSE LARGE B-CELL LYMPHOMA STAGE IV
     Dosage: STRENGTH: 50 MG.
     Route: 048
     Dates: start: 20170710, end: 20170928

REACTIONS (14)
  - Blood alkaline phosphatase increased [Recovered/Resolved]
  - Abdominal pain upper [Recovered/Resolved]
  - Immunodeficiency [Unknown]
  - Decreased appetite [Recovered/Resolved]
  - Blood bilirubin increased [Recovered/Resolved]
  - Hepatomegaly [Recovered/Resolved]
  - Nausea [Recovered/Resolved]
  - Pruritus [Recovered/Resolved]
  - Weight decreased [Recovered/Resolved]
  - Hepatic infection bacterial [Recovered/Resolved]
  - Rash [Recovered/Resolved]
  - Splenomegaly [Recovered/Resolved]
  - Food aversion [Unknown]
  - C-reactive protein increased [Recovered/Resolved]

NARRATIVE: CASE EVENT DATE: 2018
